FAERS Safety Report 4545827-0 (Version None)
Quarter: 2005Q1

REPORT INFORMATION
  Report Type: 
  Country: None (occurrence: None)
  Receive Date: 20050103
  Receipt Date: 20041220
  Transmission Date: 20050727
  Serious: Yes (Hospitalization, Other)
  Sender: FDA-Public Use
  Company Number: 2004088109

PATIENT
  Age: 76 Year
  Sex: Female

DRUGS (8)
  1. NEURONTIN [Suspect]
     Indication: NERVE INJURY
     Dosage: 300 MG (100 MG, 3 IN 1 D), ORAL
     Route: 048
     Dates: start: 20030430, end: 20030715
  2. ALL OTHER THERAPEUTIC PRODUCTS(ALL OTHER THERAPEUTIC PRODUCTS) [Concomitant]
  3. DYAZIDE [Concomitant]
  4. WARFARIN SODIUM [Concomitant]
  5. OMEPRAZOLE [Concomitant]
  6. FENTANYL [Concomitant]
  7. PANTOPRAZOLE (PANTOPRAZOLE) [Concomitant]
  8. FLURAZEPAM HYDROCHLORIDE(FLURAZEPAM HYDROCHLORIDE_ [Concomitant]

REACTIONS (7)
  - BLOOD PRESSURE INCREASED [None]
  - DIZZINESS [None]
  - FEELING COLD [None]
  - HYPOAESTHESIA [None]
  - LABYRINTHITIS [None]
  - MOVEMENT DISORDER [None]
  - PAIN IN EXTREMITY [None]
